FAERS Safety Report 24788879 (Version 1)
Quarter: 2024Q4

REPORT INFORMATION
  Report Type: Spontaneous
  Country: CA (occurrence: CA)
  Receive Date: 20241230
  Receipt Date: 20241230
  Transmission Date: 20250114
  Serious: Yes (Other)
  Sender: PFIZER
  Company Number: CA-PFIZER INC-202400329922

PATIENT
  Age: 23 Year
  Sex: Female

DRUGS (4)
  1. ABRILADA [Suspect]
     Active Substance: ADALIMUMAB-AFZB
     Indication: Psoriatic arthropathy
     Dosage: EVERY 2 WEEKS
     Route: 058
     Dates: start: 20240130, end: 2024
  2. ABRILADA [Suspect]
     Active Substance: ADALIMUMAB-AFZB
     Dosage: EVERY 2 WEEKS
     Route: 058
     Dates: start: 2024, end: 20241119
  3. COLCHICINE [Concomitant]
     Active Substance: COLCHICINE
     Dosage: 1 DF
     Dates: start: 2019
  4. CELEBREX [Concomitant]
     Active Substance: CELECOXIB
     Dosage: 1 DF
     Dates: start: 2019

REACTIONS (1)
  - Bronchitis [Unknown]
